FAERS Safety Report 7640972-5 (Version None)
Quarter: 2011Q3

REPORT INFORMATION
  Report Type: 
  Country: None (occurrence: None)
  Receive Date: 20110727
  Receipt Date: 20110727
  Transmission Date: 20111222
  Serious: Yes (Other)
  Sender: FDA-Public Use
  Company Number: None

PATIENT
  Sex: Female
  Weight: 72.5755 kg

DRUGS (1)
  1. NITROFURANTOIN [Suspect]
     Indication: CYSTITIS
     Dosage: 1 TWICE DAILY 10 DAYS
     Dates: start: 20110617

REACTIONS (5)
  - RASH [None]
  - OEDEMA PERIPHERAL [None]
  - BLISTER [None]
  - PRURITUS [None]
  - SKIN EXFOLIATION [None]
